FAERS Safety Report 19209870 (Version 1)
Quarter: 2021Q2

REPORT INFORMATION
  Report Type: Spontaneous
  Country: US (occurrence: US)
  Receive Date: 20210504
  Receipt Date: 20210504
  Transmission Date: 20210717
  Serious: Yes (Other)
  Sender: FDA-Public Use
  Company Number: US-DRREDDYS-USA/USA/21/0134917

PATIENT
  Age: 15 Year
  Sex: Male

DRUGS (1)
  1. ZENATANE [Suspect]
     Active Substance: ISOTRETINOIN
     Indication: PRODUCT USED FOR UNKNOWN INDICATION
     Dosage: RMA ISSUE DATE:12/3/2020 12:00:00 AM,1/4/2021 12:00:00 AM ,2/2/2021 12:00:00 AM, 3/2/2021 12:00:00 A
     Route: 048

REACTIONS (2)
  - Arthralgia [Unknown]
  - Mood altered [Unknown]
